FAERS Safety Report 16013526 (Version 1)
Quarter: 2019Q1

REPORT INFORMATION
  Report Type: Spontaneous
  Country: US (occurrence: US)
  Receive Date: 20190227
  Receipt Date: 20190227
  Transmission Date: 20190418
  Serious: Yes (Other)
  Sender: FDA-Public Use
  Company Number: US-JNJFOC-20190236436

PATIENT
  Age: 60 Year
  Sex: Female

DRUGS (1)
  1. INVOKANA [Suspect]
     Active Substance: CANAGLIFLOZIN
     Indication: TYPE 2 DIABETES MELLITUS
     Route: 048
     Dates: start: 201509, end: 20171026

REACTIONS (3)
  - Toe amputation [Unknown]
  - Diabetic foot infection [Unknown]
  - Dry gangrene [Unknown]

NARRATIVE: CASE EVENT DATE: 201704
